FAERS Safety Report 8064448-9 (Version None)
Quarter: 2012Q1

REPORT INFORMATION
  Report Type: 
  Country: None (occurrence: None)
  Receive Date: 20120123
  Receipt Date: 20120112
  Transmission Date: 20120608
  Serious: Yes (Hospitalization, Other)
  Sender: FDA-Public Use
  Company Number: US-BAXTER-2012BH000330

PATIENT
  Age: 65 Year
  Sex: Female

DRUGS (2)
  1. DIANEAL [Suspect]
     Indication: PERITONEAL DIALYSIS
     Route: 033
  2. DIANEAL [Suspect]
     Indication: PERITONEAL DIALYSIS
     Route: 033

REACTIONS (14)
  - FLUID OVERLOAD [None]
  - DEHYDRATION [None]
  - NAUSEA [None]
  - CONSTIPATION [None]
  - INTESTINAL OBSTRUCTION [None]
  - DIZZINESS [None]
  - BLOOD PRESSURE INCREASED [None]
  - TRANSIENT ISCHAEMIC ATTACK [None]
  - HYPOTENSION [None]
  - PERITONEAL DIALYSIS COMPLICATION [None]
  - CEREBROVASCULAR ACCIDENT [None]
  - VOMITING [None]
  - PAIN [None]
  - DISCOMFORT [None]
